FAERS Safety Report 4779813-2 (Version None)
Quarter: 2005Q3

REPORT INFORMATION
  Report Type: 
  Country: None (occurrence: None)
  Receive Date: 20050927
  Receipt Date: 20050920
  Transmission Date: 20060218
  Serious: Yes (Death, Other)
  Sender: FDA-Public Use
  Company Number: US-JNJFOC-20050905101

PATIENT
  Sex: Female
  Weight: 95.26 kg

DRUGS (16)
  1. FENTANYL [Suspect]
     Route: 062
     Dates: start: 20050809, end: 20050810
  2. VYTORIN [Concomitant]
     Route: 048
     Dates: end: 20050810
  3. LEXAPRO [Concomitant]
     Indication: DEPRESSION
     Route: 048
     Dates: end: 20050810
  4. PLAVIX [Concomitant]
     Indication: ANTICOAGULANT THERAPY
     Route: 048
     Dates: end: 20050810
  5. NEXIUM [Concomitant]
     Route: 048
     Dates: end: 20050810
  6. LASIX [Concomitant]
     Indication: DIURETIC THERAPY
     Route: 048
     Dates: start: 19980101, end: 20050810
  7. DARVOCET-N 100 [Concomitant]
     Route: 048
     Dates: end: 20050810
  8. DARVOCET-N 100 [Concomitant]
     Indication: PAIN
     Route: 048
     Dates: end: 20050810
  9. LORTAB [Concomitant]
     Route: 048
     Dates: end: 20050810
  10. LORTAB [Concomitant]
     Indication: PAIN
     Dosage: AS NECESSARY
     Route: 048
     Dates: end: 20050810
  11. ASPIRIN [Concomitant]
     Route: 048
     Dates: end: 20050810
  12. GLUCOPHAGE [Concomitant]
     Route: 048
     Dates: end: 20050810
  13. NEURONTIN [Concomitant]
     Route: 048
     Dates: end: 20050810
  14. KLOR-CON [Concomitant]
     Route: 048
     Dates: end: 20050810
  15. DILTIAZEM HCL [Concomitant]
     Indication: HYPERTENSION
     Route: 048
     Dates: end: 20050810
  16. INSULIN [Concomitant]
     Route: 058
     Dates: end: 20050810

REACTIONS (1)
  - MYOCARDIAL INFARCTION [None]
